FAERS Safety Report 9674947 (Version 1)
Quarter: 2013Q4

REPORT INFORMATION
  Report Type: Report from Study
  Country: CA (occurrence: CA)
  Receive Date: 20131107
  Receipt Date: 20131107
  Transmission Date: 20140711
  Serious: Yes (Hospitalization, Other)
  Sender: FDA-Public Use
  Company Number: CA-JNJFOC-20131101046

PATIENT
  Age: 39 Year
  Sex: Male
  Weight: 229.07 kg

DRUGS (9)
  1. REMICADE [Suspect]
     Indication: PSORIASIS
     Route: 042
     Dates: start: 20130726
  2. SYMBICORT [Concomitant]
     Route: 055
  3. SALBUTAMOL [Concomitant]
     Route: 065
  4. GABAPENTIN [Concomitant]
     Route: 065
  5. LISINOPRIL [Concomitant]
     Route: 065
  6. LISINOPRIL [Concomitant]
     Route: 065
  7. FLEXERIL [Concomitant]
     Route: 065
  8. HYDROMORPHONE CONTIN [Concomitant]
     Indication: PAIN
     Route: 065
  9. HYDROMORPHONE CONTIN [Concomitant]
     Indication: PAIN
     Route: 065

REACTIONS (2)
  - Cellulitis [Recovered/Resolved]
  - Sciatica [Recovering/Resolving]
